FAERS Safety Report 9325966 (Version 1)
Quarter: 2013Q2

REPORT INFORMATION
  Report Type: Report from Study
  Country: JP (occurrence: JP)
  Receive Date: 20130604
  Receipt Date: 20130604
  Transmission Date: 20140414
  Serious: Yes (Hospitalization)
  Sender: FDA-Public Use
  Company Number: JP-VERTEX PHARMACEUTICALS INC-AE-2012-002184

PATIENT
  Age: 59 Year
  Sex: Male

DRUGS (12)
  1. VX-950 (TELAPREVIR) [Suspect]
     Indication: CHRONIC HEPATITIS C
     Dosage: 2250 MG, QD
     Route: 048
     Dates: start: 20111227, end: 20120109
  2. VX-950 (TELAPREVIR) [Suspect]
     Dosage: 1500 MG, QD
     Route: 048
     Dates: start: 20120110, end: 20120219
  3. PEGINTRON [Suspect]
     Indication: CHRONIC HEPATITIS C
     Dosage: 1.5 ?G/KG, QW
     Route: 058
     Dates: start: 20111227, end: 20120102
  4. PEGINTRON [Suspect]
     Dosage: 80 ?G/ BODY/ WEEK
     Route: 058
     Dates: start: 20120103, end: 20120115
  5. PEGINTRON [Suspect]
     Dosage: 70 ?G/ BODY/ WEEK
     Route: 058
     Dates: start: 20120116, end: 20120129
  6. PEGINTRON [Suspect]
     Dosage: 60 ?G/ BODY/ WEEK
     Route: 058
     Dates: start: 20120130, end: 20120205
  7. PEGINTRON [Suspect]
     Dosage: 50 ?G/ WEEK
     Route: 058
     Dates: start: 20120206, end: 20120213
  8. REBETOL [Suspect]
     Indication: CHRONIC HEPATITIS C
     Dosage: 600 MG, QD
     Route: 048
     Dates: start: 20111227, end: 20120130
  9. REBETOL [Suspect]
     Dosage: 400 MG, QD
     Route: 048
     Dates: start: 20120131, end: 20120220
  10. DOGMATYL [Concomitant]
     Dosage: 150 MG, QD
     Route: 048
     Dates: start: 20111227, end: 20120220
  11. EPADEL [Concomitant]
     Dosage: 1800 MG, QD
     Route: 048
     Dates: start: 20111227, end: 20120220
  12. NAIXAN [Concomitant]
     Dosage: 300 MG, QD
     Route: 048
     Dates: start: 20111227, end: 20120220

REACTIONS (2)
  - Renal impairment [Not Recovered/Not Resolved]
  - Platelet count decreased [Recovered/Resolved]
